FAERS Safety Report 4959518-5 (Version None)
Quarter: 2006Q1

REPORT INFORMATION
  Report Type: 
  Country: None (occurrence: None)
  Receive Date: 20060331
  Receipt Date: 20051202
  Transmission Date: 20060701
  Serious: Yes (Disabling)
  Sender: FDA-Public Use
  Company Number: US-MERCK-0512USA00477

PATIENT
  Age: 58 Year
  Sex: Female
  Weight: 86 kg

DRUGS (2)
  1. VIOXX [Suspect]
     Indication: ARTHRITIS
     Route: 048
     Dates: start: 20020319, end: 20020831
  2. VIOXX [Suspect]
     Indication: PAIN
     Route: 048
     Dates: start: 20020319, end: 20020831

REACTIONS (1)
  - CEREBROVASCULAR ACCIDENT [None]
